FAERS Safety Report 6056477-1 (Version None)
Quarter: 2009Q1

REPORT INFORMATION
  Report Type: 
  Country: None (occurrence: None)
  Receive Date: 20090129
  Receipt Date: 20090122
  Transmission Date: 20090719
  Serious: Yes (Hospitalization, Other)
  Sender: FDA-Public Use
  Company Number: PHHY2008GB31524

PATIENT
  Sex: Female

DRUGS (4)
  1. CLOZARIL [Suspect]
     Indication: SCHIZOPHRENIA
     Dosage: UNK
     Dates: start: 19941107
  2. CLOZARIL [Suspect]
     Dosage: 100 MG/DAY
     Route: 048
     Dates: start: 19970101
  3. FLUOXETINE HCL [Concomitant]
     Indication: DEPRESSED MOOD
     Dosage: 20 MG
     Route: 048
     Dates: start: 19970101, end: 20081201
  4. NICOTINE [Concomitant]

REACTIONS (8)
  - BONE SARCOMA [None]
  - FATIGUE [None]
  - MYALGIA [None]
  - NEOPLASM MALIGNANT [None]
  - PAIN [None]
  - SARCOMA [None]
  - THERAPY CESSATION [None]
  - WEIGHT DECREASED [None]
